FAERS Safety Report 13131173 (Version 3)
Quarter: 2017Q1

REPORT INFORMATION
  Report Type: Spontaneous
  Country: US (occurrence: US)
  Receive Date: 20170119
  Receipt Date: 20170210
  Transmission Date: 20170428
  Serious: Yes (Hospitalization, Other)
  Sender: FDA-Public Use
  Company Number: US-UNITED THERAPEUTICS-UNT-2016-019852

PATIENT
  Age: 46 Year
  Sex: Female
  Weight: 53.97 kg

DRUGS (5)
  1. MIDODRINE [Suspect]
     Active Substance: MIDODRINE
     Indication: PRODUCT USED FOR UNKNOWN INDICATION
  2. REMODULIN [Suspect]
     Active Substance: TREPROSTINIL
     Indication: PULMONARY ARTERIAL HYPERTENSION
     Dosage: 0.142 ?G/KG, CONTINUING
     Route: 041
     Dates: start: 20140723
  3. REMODULIN [Suspect]
     Active Substance: TREPROSTINIL
     Dosage: 0.144 ?G/KG, CONTINUING
     Route: 041
  4. REMODULIN [Suspect]
     Active Substance: TREPROSTINIL
     Dosage: 0.140 ?G/KG, CONTINUING
     Route: 041
  5. OPSUMIT [Suspect]
     Active Substance: MACITENTAN
     Indication: PRODUCT USED FOR UNKNOWN INDICATION
     Dosage: UNK
     Route: 065

REACTIONS (11)
  - Catheterisation cardiac [Unknown]
  - Abdominal pain upper [Unknown]
  - Weight decreased [Unknown]
  - Pulmonary arterial pressure abnormal [Unknown]
  - Therapy non-responder [Unknown]
  - Malaise [Unknown]
  - Oedema [Unknown]
  - Dizziness [Unknown]
  - Cardiac discomfort [Unknown]
  - Hypersomnia [Unknown]
  - Hypotension [Not Recovered/Not Resolved]

NARRATIVE: CASE EVENT DATE: 201612
